FAERS Safety Report 7705502-8 (Version None)
Quarter: 2011Q3

REPORT INFORMATION
  Report Type: 
  Country: None (occurrence: None)
  Receive Date: 20110823
  Receipt Date: 20110823
  Transmission Date: 20111222
  Serious: No
  Sender: FDA-Public Use
  Company Number: None

PATIENT
  Age: 66 Year
  Sex: Female
  Weight: 90 kg

DRUGS (1)
  1. HURRICAINE SPRAY PER MD 20% BENZOCAINE BEUTLICH PHARMACEUTICALS [Suspect]
     Indication: ECHOCARDIOGRAM
     Dosage: SPRAY 2 047
     Dates: start: 20110725

REACTIONS (2)
  - PCO2 INCREASED [None]
  - BLOOD PRESSURE DECREASED [None]
